FAERS Safety Report 7119625-8 (Version None)
Quarter: 2010Q4

REPORT INFORMATION
  Report Type: 
  Country: None (occurrence: None)
  Receive Date: 20101123
  Receipt Date: 20101118
  Transmission Date: 20110411
  Serious: Yes (Life-Threatening, Hospitalization)
  Sender: FDA-Public Use
  Company Number: FR-BRISTOL-MYERS SQUIBB COMPANY-15352719

PATIENT
  Age: 33 Year
  Sex: Male
  Weight: 78 kg

DRUGS (5)
  1. ABILIFY [Suspect]
     Indication: SCHIZOID PERSONALITY DISORDER
     Route: 048
     Dates: start: 20100930, end: 20101020
  2. ZYPREXA [Suspect]
     Indication: ANXIETY
     Dosage: 20MG/D 26AUG-21SEP2010
     Route: 048
     Dates: start: 20100826, end: 20100921
  3. XANAX [Concomitant]
     Indication: ANXIETY
     Route: 048
     Dates: start: 20100717, end: 20101023
  4. EFFEXOR [Concomitant]
     Indication: DEPRESSION
     Route: 048
     Dates: start: 20100913
  5. LOXAPAC [Concomitant]
     Indication: ANXIOLYTIC THERAPY
     Route: 048
     Dates: start: 20100719, end: 20100726

REACTIONS (2)
  - PERSECUTORY DELUSION [None]
  - SUICIDE ATTEMPT [None]
